FAERS Safety Report 19489986 (Version 1)
Quarter: 2021Q3

REPORT INFORMATION
  Report Type: Spontaneous
  Country: ZA (occurrence: ZA)
  Receive Date: 20210704
  Receipt Date: 20210704
  Transmission Date: 20211014
  Serious: Yes (Other)
  Sender: FDA-Public Use
  Company Number: ZA-CELLTRION INC.-2021ZA005595

PATIENT

DRUGS (5)
  1. METHOTREXATE. [Concomitant]
     Active Substance: METHOTREXATE
     Dosage: 7.5 MG, WEEKLY
  2. REMSIMA [Suspect]
     Active Substance: INFLIXIMAB
     Indication: PSORIATIC ARTHROPATHY
     Dosage: UNK
     Dates: start: 20210316
  3. REMSIMA [Suspect]
     Active Substance: INFLIXIMAB
     Dosage: 200 MG IN 200ML NORMAL SALINE INFUSION
     Route: 042
     Dates: start: 20210419
  4. FOLATE [Concomitant]
     Active Substance: FOLATE SODIUM
     Dosage: 5 MG, DAILY
  5. NORMAL SALINE [Concomitant]
     Active Substance: SODIUM CHLORIDE
     Dosage: REMSIMA 200 MG IN 200 ML NORMAL SALINE INFUSION
     Dates: start: 20210419

REACTIONS (4)
  - Lip swelling [Recovering/Resolving]
  - Chest discomfort [Recovering/Resolving]
  - Underdose [Unknown]
  - Swelling face [Recovering/Resolving]
